FAERS Safety Report 10244443 (Version 1)
Quarter: 2014Q1

REPORT INFORMATION
  Report Type: Report from Study
  Country: US (occurrence: None)
  Receive Date: 20140306
  Receipt Date: 20140306
  Transmission Date: 20141002
  Serious: Yes (Hospitalization)
  Sender: FDA-Public Use
  Company Number: 163-21880-13013990

PATIENT
  Age: 69 Year
  Sex: Female
  Weight: 62.13 kg

DRUGS (25)
  1. REVLIMID (LENALIDOMIDE) (CAPSULES) [Suspect]
     Indication: PLASMA CELL MYELOMA
     Dosage: 25 MG,CYCLIC,PO?40MG,CYCLIC EVERY FRIDAY W/REVLIMID, PO
     Route: 048
     Dates: start: 20121204, end: 20130111
  2. DEXAMETHASONE [Suspect]
     Indication: PLASMA CELL MYELOMA
     Route: 048
     Dates: start: 20121204, end: 20130109
  3. OXYCONTIN (OXYCODONE HYDROCHLORIDE) [Concomitant]
  4. PERCOLONE (OXYCODONE HYDROCHLORIDE) (UNKNOWN) [Concomitant]
  5. COUMADIN (WARFARIN SODIUM) (UNKNOWN) [Concomitant]
  6. REQUIP (ROPINIROLE HYDROCHLORIDE) (UNKNOWN) [Concomitant]
  7. SPIRIVA (TIOTROPIUM BROMIDE) (INHALANT) [Concomitant]
  8. ACYCLOVIR (UNKNOWN) [Concomitant]
  9. CITALOPRAM (UNKNOWN) [Concomitant]
  10. ESTROPIPATE (UNKNOWN) [Concomitant]
  11. LASIX (FUROSEMIDE) (UNKNOWN) [Concomitant]
  12. GLIMEPIRIDE (UNKNOWN) [Concomitant]
  13. IMDUR (ISOSORBRIDE MONONITRATE) (UNKNOWN) [Concomitant]
  14. LISINOPRIL (UNKNOWN) [Concomitant]
  15. LORAZEPAM (UNKNOWN) [Concomitant]
  16. AZITHROMYCIN (UNKNOWN) [Concomitant]
  17. LEVAQUIN (LEVOFLOXACIN) (UNKNOWN) [Concomitant]
  18. AZTREONAM (UNKNOWN) [Concomitant]
  19. PLAVIX (CLOPIDOGREL SULFATE) (UNKNOWN) [Concomitant]
  20. ISOSORBIDE (UNKNOWN) [Concomitant]
  21. Z-PAK (AZITHROMYCIN) (UNKNOWN) [Concomitant]
  22. LANTUS (INSULIN GLARGINE) (UNKNOWN) [Concomitant]
  23. OXYGEN (GAS FOR INHALATION) [Concomitant]
  24. MUCOMYST (ACETYLCYSTEINE) (UNKNOWN) [Concomitant]
  25. MLN9708 [Suspect]
     Indication: PLASMA CELL MYELOMA
     Route: 048
     Dates: start: 20121204, end: 20130109

REACTIONS (1)
  - Myocardial infarction [None]
